FAERS Safety Report 5166871-9 (Version None)
Quarter: 2006Q4

REPORT INFORMATION
  Report Type: 
  Country: None (occurrence: None)
  Receive Date: 20061207
  Receipt Date: 20061115
  Transmission Date: 20070319
  Serious: Yes (Disabling)
  Sender: FDA-Public Use
  Company Number: BE-ELI_LILLY_AND_COMPANY-BE200611003313

PATIENT
  Age: 73 Year
  Sex: Male

DRUGS (3)
  1. GEMZAR [Suspect]
     Indication: NON-SMALL CELL LUNG CANCER
     Dosage: 1000 MG/M2, OTHER
     Route: 042
     Dates: start: 20040119, end: 20040414
  2. CISPLATIN [Concomitant]
     Indication: NON-SMALL CELL LUNG CANCER
     Dosage: 50 MG/M2, OTHER
     Route: 042
     Dates: start: 20040119, end: 20040414
  3. ISOPHOSPHAMIDE [Concomitant]
     Indication: NON-SMALL CELL LUNG CANCER
     Dosage: 50 MG/M2, OTHER
     Route: 042
     Dates: start: 20040119, end: 20040414

REACTIONS (2)
  - ARTERIAL STENOSIS LIMB [None]
  - INTERMITTENT CLAUDICATION [None]
